FAERS Safety Report 6287017-X (Version None)
Quarter: 2009Q3

REPORT INFORMATION
  Report Type: 
  Country: None (occurrence: None)
  Receive Date: 20090728
  Receipt Date: 20090723
  Transmission Date: 20100115
  Serious: No
  Sender: FDA-Public Use
  Company Number: US-B.I. PHARMACEUTICALS,INC./RIDGEFIELD-2009-BP-08733BP

PATIENT
  Age: 72 Year
  Sex: Female

DRUGS (8)
  1. CATAPRES-TTS-1 [Suspect]
     Indication: HYPERTENSION
     Dosage: 0.3 MG
     Route: 061
     Dates: start: 20050101
  2. VERAPAMIL [Concomitant]
     Indication: ATRIAL FIBRILLATION
  3. ATENOLOL [Concomitant]
     Indication: ATRIAL FIBRILLATION
  4. DIGOXIN [Concomitant]
     Indication: SUPRAVENTRICULAR TACHYCARDIA
  5. POTASSIUM CHLORIDE [Concomitant]
     Indication: CARDIAC DISORDER
  6. TRAMADOL [Concomitant]
     Indication: FIBROMYALGIA
  7. LORAZEPAM [Concomitant]
     Indication: FIBROMYALGIA
  8. LEVBID [Concomitant]
     Indication: CROHN'S DISEASE

REACTIONS (2)
  - BLOOD PRESSURE INCREASED [None]
  - PRODUCT TAMPERING [None]
